FAERS Safety Report 5470132-8 (Version None)
Quarter: 2007Q3

REPORT INFORMATION
  Report Type: 
  Country: None (occurrence: None)
  Receive Date: 20070924
  Receipt Date: 20070917
  Transmission Date: 20080115
  Serious: Yes (Death, Hospitalization)
  Sender: FDA-Public Use
  Company Number: 236144K07USA

PATIENT
  Age: 56 Year
  Sex: Female
  Weight: 68.0396 kg

DRUGS (36)
  1. REBIF [Suspect]
     Indication: MULTIPLE SCLEROSIS
     Dosage: 44 MCG, 3 IN 1 WEEKS, SUBCUTANEOUS
     Route: 058
     Dates: start: 20030622, end: 20070301
  2. TRAZODONE HCL [Concomitant]
  3. NEURONTIN [Concomitant]
  4. BACLOFEN [Concomitant]
  5. DETROL LA [Concomitant]
  6. CITRUCEL (METHYLCELLULOSE) [Concomitant]
  7. PROVIGIL [Concomitant]
  8. URISPAS [Concomitant]
  9. ZANTAC 150 [Concomitant]
  10. PROZAC [Concomitant]
  11. XANAX [Concomitant]
  12. DARVOCET [Concomitant]
  13. KLONOPIN [Concomitant]
  14. COPAXONE [Concomitant]
  15. CIPRO [Concomitant]
  16. SEPTRA [Concomitant]
  17. DESIPRAMINE HCL [Concomitant]
  18. DIFLUNISAL [Concomitant]
  19. MIRAPEX [Concomitant]
  20. PLAQUENIL [Concomitant]
  21. LISINOPRIL [Concomitant]
  22. METHADONE HCL [Concomitant]
  23. TRAMADOL HCL [Concomitant]
  24. VIOXX [Concomitant]
  25. PREMPRO (PROVELLA-14) [Concomitant]
  26. OXYBUTYNIN CHLORIDE [Concomitant]
  27. LYRICA [Concomitant]
  28. CELEBREX [Concomitant]
  29. REQUIP [Concomitant]
  30. MIRALAX [Concomitant]
  31. IBUPROFEN [Concomitant]
  32. SIMETHICONE (DIMETICONE, ACTIVATED) [Concomitant]
  33. PREDNISONE TAB [Concomitant]
  34. KEFLEX [Concomitant]
  35. SOAPSUDS ENEMA (SOFT SOAP) [Concomitant]
  36. ZITHROMAX [Concomitant]

REACTIONS (2)
  - COLONIC ATONY [None]
  - GASTROINTESTINAL STOMA COMPLICATION [None]
